FAERS Safety Report 5579183-6 (Version None)
Quarter: 2008Q1

REPORT INFORMATION
  Report Type: 
  Country: None (occurrence: None)
  Receive Date: 20080102
  Receipt Date: 20071227
  Transmission Date: 20080703
  Serious: Yes (Other)
  Sender: FDA-Public Use
  Company Number: B0485674A

PATIENT
  Age: 40 Year
  Sex: Male

DRUGS (11)
  1. PAXIL [Suspect]
     Indication: DYSTHYMIC DISORDER
     Dosage: 10MG PER DAY
     Route: 048
     Dates: start: 20021121
  2. PAXIL [Suspect]
     Dosage: 20MG PER DAY
     Route: 048
     Dates: start: 20070911
  3. LENDORMIN [Concomitant]
     Dosage: .25MG PER DAY
     Route: 048
     Dates: start: 20070522, end: 20070918
  4. ROHYPNOL [Concomitant]
     Dosage: 1MG PER DAY
     Dates: start: 20070718, end: 20070918
  5. HALCION [Concomitant]
     Dosage: .5MG PER DAY
     Route: 048
  6. GASMOTIN [Concomitant]
     Dosage: 5MG THREE TIMES PER DAY
     Route: 048
     Dates: start: 20070718
  7. OMEPRAL [Concomitant]
     Dosage: 20MG PER DAY
     Route: 048
     Dates: start: 20060810
  8. MEILAX [Concomitant]
     Dosage: 2MG PER DAY
     Route: 048
  9. UNKNOWN DRUG [Concomitant]
     Dosage: .8MG PER DAY
     Route: 048
     Dates: start: 20070219
  10. AMOBAN [Concomitant]
     Dosage: 10MG PER DAY
     Route: 048
     Dates: start: 20070522, end: 20070720
  11. ABILIT [Concomitant]
     Route: 048
     Dates: start: 20070911

REACTIONS (2)
  - IDIOSYNCRATIC ALCOHOL INTOXICATION [None]
  - PHYSICAL ASSAULT [None]
